FAERS Safety Report 7235313-1 (Version None)
Quarter: 2011Q1

REPORT INFORMATION
  Report Type: 
  Country: None (occurrence: None)
  Receive Date: 20110111
  Receipt Date: 20110105
  Transmission Date: 20110831
  Serious: Yes (Other)
  Sender: FDA-Public Use
  Company Number: VISP-PR-1008S-0427

PATIENT
  Age: 73 Year
  Sex: Male

DRUGS (3)
  1. VISIPAQUE [Suspect]
     Indication: PRODUCT USED FOR UNKNOWN INDICATION
     Dosage: SINGLE DOSE, I.V.
     Route: 042
     Dates: start: 20100812, end: 20100812
  2. VISIPAQUE [Suspect]
     Indication: AORTIC ANEURYSM
     Dosage: 130 ML, SINGLE DOSE, I.A. ; 100 ML, SINGLE DOSE, I.A.
     Route: 013
     Dates: start: 20100917, end: 20100917
  3. VISIPAQUE [Suspect]
     Indication: AORTIC ANEURYSM
     Dosage: 130 ML, SINGLE DOSE, I.A. ; 100 ML, SINGLE DOSE, I.A.
     Route: 013
     Dates: start: 20100802, end: 20100802

REACTIONS (3)
  - SKIN EXFOLIATION [None]
  - ERYTHEMA [None]
  - AORTIC ANEURYSM [None]
